FAERS Safety Report 7518966-X (Version None)
Quarter: 2011Q2

REPORT INFORMATION
  Report Type: 
  Country: None (occurrence: None)
  Receive Date: 20110523
  Receipt Date: 20110512
  Transmission Date: 20111010
  Serious: Yes (Death, Disabling)
  Sender: FDA-Public Use
  Company Number: VAL_00568_2011

PATIENT
  Sex: Male

DRUGS (2)
  1. ROCALTROL [Suspect]
     Indication: OSTEOPOROSIS
     Dosage: (DF ORAL)
     Route: 048
  2. CALCIUM CARBONATE [Concomitant]

REACTIONS (2)
  - FALL [None]
  - SEPTIC SHOCK [None]
